FAERS Safety Report 21768418 (Version 1)
Quarter: 2022Q4

REPORT INFORMATION
  Report Type: Report from Study
  Country: US (occurrence: US)
  Receive Date: 20221222
  Receipt Date: 20221222
  Transmission Date: 20230112
  Serious: No
  Sender: FDA-Public Use
  Company Number: US-ABBVIE-4234360

PATIENT
  Sex: Male

DRUGS (1)
  1. HUMIRA [Suspect]
     Active Substance: ADALIMUMAB
     Indication: Colitis microscopic
     Route: 058
     Dates: start: 202210

REACTIONS (3)
  - Off label use [Not Recovered/Not Resolved]
  - Diarrhoea [Unknown]
  - Wrong technique in product usage process [Not Recovered/Not Resolved]
